FAERS Safety Report 25689364 (Version 1)
Quarter: 2025Q3

REPORT INFORMATION
  Report Type: Spontaneous
  Country: US (occurrence: US)
  Receive Date: 20250818
  Receipt Date: 20250818
  Transmission Date: 20251020
  Serious: Yes (Other)
  Sender: MYLAN
  Company Number: US-MYLANLABS-2025M1066999

PATIENT
  Sex: Male

DRUGS (28)
  1. VALPROIC ACID [Suspect]
     Active Substance: VALPROIC ACID
     Indication: Seizure
  2. VALPROIC ACID [Suspect]
     Active Substance: VALPROIC ACID
     Route: 065
  3. VALPROIC ACID [Suspect]
     Active Substance: VALPROIC ACID
     Route: 065
  4. VALPROIC ACID [Suspect]
     Active Substance: VALPROIC ACID
  5. ACETAMINOPHEN [Suspect]
     Active Substance: ACETAMINOPHEN
     Indication: Headache
  6. ACETAMINOPHEN [Suspect]
     Active Substance: ACETAMINOPHEN
     Indication: Subarachnoid haemorrhage
     Route: 065
  7. ACETAMINOPHEN [Suspect]
     Active Substance: ACETAMINOPHEN
     Indication: Intracranial aneurysm
     Route: 065
  8. ACETAMINOPHEN [Suspect]
     Active Substance: ACETAMINOPHEN
  9. MAGNESIUM [Suspect]
     Active Substance: MAGNESIUM
     Indication: Supplementation therapy
  10. MAGNESIUM [Suspect]
     Active Substance: MAGNESIUM
     Indication: Subarachnoid haemorrhage
     Route: 065
  11. MAGNESIUM [Suspect]
     Active Substance: MAGNESIUM
     Indication: Headache
     Route: 065
  12. MAGNESIUM [Suspect]
     Active Substance: MAGNESIUM
     Indication: Intracranial aneurysm
  13. RIBOFLAVIN [Suspect]
     Active Substance: RIBOFLAVIN
     Indication: Supplementation therapy
  14. RIBOFLAVIN [Suspect]
     Active Substance: RIBOFLAVIN
     Indication: Subarachnoid haemorrhage
     Route: 065
  15. RIBOFLAVIN [Suspect]
     Active Substance: RIBOFLAVIN
     Indication: Headache
     Route: 065
  16. RIBOFLAVIN [Suspect]
     Active Substance: RIBOFLAVIN
     Indication: Intracranial aneurysm
  17. FEVERFEW [Suspect]
     Active Substance: FEVERFEW
     Indication: Supplementation therapy
  18. FEVERFEW [Suspect]
     Active Substance: FEVERFEW
     Indication: Subarachnoid haemorrhage
     Route: 065
  19. FEVERFEW [Suspect]
     Active Substance: FEVERFEW
     Indication: Headache
     Route: 065
  20. FEVERFEW [Suspect]
     Active Substance: FEVERFEW
     Indication: Intracranial aneurysm
  21. LAMOTRIGINE [Concomitant]
     Active Substance: LAMOTRIGINE
     Indication: Seizure
  22. LAMOTRIGINE [Concomitant]
     Active Substance: LAMOTRIGINE
     Route: 065
  23. LAMOTRIGINE [Concomitant]
     Active Substance: LAMOTRIGINE
     Route: 065
  24. LAMOTRIGINE [Concomitant]
     Active Substance: LAMOTRIGINE
  25. METOPROLOL [Concomitant]
     Active Substance: METOPROLOL
     Indication: Hypertension
  26. METOPROLOL [Concomitant]
     Active Substance: METOPROLOL
     Route: 065
  27. METOPROLOL [Concomitant]
     Active Substance: METOPROLOL
     Route: 065
  28. METOPROLOL [Concomitant]
     Active Substance: METOPROLOL

REACTIONS (2)
  - Postural tremor [Unknown]
  - Drug ineffective [Unknown]
